FAERS Safety Report 24387534 (Version 1)
Quarter: 2024Q4

REPORT INFORMATION
  Report Type: Spontaneous
  Country: CA (occurrence: CA)
  Receive Date: 20241002
  Receipt Date: 20241002
  Transmission Date: 20250115
  Serious: Yes (Other)
  Sender: BAYER
  Company Number: CA-BAYER-2024A137443

PATIENT
  Age: 41 Year
  Sex: Male

DRUGS (1)
  1. POLYETHYLENE GLYCOL 3350 [Suspect]
     Active Substance: POLYETHYLENE GLYCOL 3350
     Dosage: UNK
     Dates: start: 20240820, end: 20240922

REACTIONS (4)
  - Hemianaesthesia [None]
  - Brain fog [None]
  - Muscle spasms [None]
  - Coordination abnormal [None]
